FAERS Safety Report 5447800-7 (Version None)
Quarter: 2007Q3

REPORT INFORMATION
  Report Type: 
  Country: None (occurrence: None)
  Receive Date: 20070910
  Receipt Date: 20070904
  Transmission Date: 20080115
  Serious: Yes (Hospitalization)
  Sender: FDA-Public Use
  Company Number: DE-PURDUE-DEU_2007_0003461

PATIENT
  Age: 49 Year
  Sex: Male
  Weight: 90 kg

DRUGS (3)
  1. OXY/NALOX CR TABS VS OXY CR TABS [Suspect]
     Indication: BACK PAIN
     Dosage: 60 MG, DAILY
     Route: 048
     Dates: start: 20070331, end: 20070628
  2. OXY/NALOX CR TABS VS OXY CR TABS [Suspect]
     Dosage: 30 MG, DAILY
     Route: 048
     Dates: start: 20070330, end: 20070330
  3. AMITRIPTYLINE HCL [Concomitant]

REACTIONS (1)
  - EPILEPSY [None]
